FAERS Safety Report 14568842 (Version 1)
Quarter: 2018Q1

REPORT INFORMATION
  Report Type: Spontaneous
  Country: DE (occurrence: DE)
  Receive Date: 20180223
  Receipt Date: 20180223
  Transmission Date: 20180509
  Serious: Yes (Hospitalization)
  Sender: FDA-Public Use
  Company Number: DE-BAUSCH-BL-2018-005031

PATIENT
  Age: 75 Year
  Sex: Female
  Weight: 58 kg

DRUGS (9)
  1. LYRICA [Concomitant]
     Active Substance: PREGABALIN
     Dosage: DAILY DOSE: 50 MG MILLIGRAM(S) EVERY DAY
     Route: 048
     Dates: start: 20170718, end: 20170724
  2. CALCIUM SANDOZ [Concomitant]
     Active Substance: CALCIUM
     Indication: PRODUCT USED FOR UNKNOWN INDICATION
     Dates: start: 20170613
  3. LEVODOPA RATIOPHARM [Concomitant]
     Indication: RESTLESS LEGS SYNDROME
     Dosage: 100/25 1X/DAY (0-0-1) IN THE NIGHT)
     Dates: start: 20121122
  4. KREON [Concomitant]
     Active Substance: PANCRELIPASE
     Indication: ABDOMINAL OPERATION
     Dosage: 10000 UNK, 3X/DAY (1-1-1)
     Route: 048
     Dates: start: 20160203
  5. CLINDAMYCIN HYDROCHLORIDE. [Suspect]
     Active Substance: CLINDAMYCIN HYDROCHLORIDE
     Indication: PROPHYLAXIS
     Route: 065
     Dates: start: 20170808, end: 20170812
  6. LEVODOPA RETARD [Concomitant]
     Indication: RESTLESS LEGS SYNDROME
     Dosage: 100/25 1X/DAY (0-1-0)
     Route: 048
     Dates: start: 20121122
  7. PALBOCICLIB [Suspect]
     Active Substance: PALBOCICLIB
     Indication: ACUTE LEUKAEMIA
     Route: 065
     Dates: start: 20170620, end: 20170820
  8. UNACID (SULTAMICILLIN TOSILATE) [Concomitant]
     Active Substance: SULTAMICILLIN TOSYLATE
     Indication: SURGERY
     Dates: start: 20170804, end: 20170807
  9. LYRICA [Concomitant]
     Active Substance: PREGABALIN
     Indication: NEUROPATHY PERIPHERAL
     Dosage: DAILY DOSE: 100 MG MILLIGRAM(S) EVERY DAY
     Route: 048
     Dates: start: 20170725, end: 20170803

REACTIONS (1)
  - Rash maculo-papular [Recovered/Resolved]

NARRATIVE: CASE EVENT DATE: 20170819
